FAERS Safety Report 7435705-1 (Version None)
Quarter: 2011Q2

REPORT INFORMATION
  Report Type: 
  Country: None (occurrence: None)
  Receive Date: 20110425
  Receipt Date: 20110415
  Transmission Date: 20111010
  Serious: Yes (Other)
  Sender: FDA-Public Use
  Company Number: US-ABBOTT-11P-163-0719695-01

PATIENT
  Sex: Female

DRUGS (8)
  1. MULTIVITAMINES AND MINERALS [Concomitant]
     Indication: ROUTINE HEALTH MAINTENANCE
     Dates: start: 20091109, end: 20101217
  2. P-NAT VIT/IRON FUM + BIS-GLY/FA VITAMIN [Concomitant]
     Indication: PREGNANCY
     Dates: start: 20101111
  3. HUMIRA [Suspect]
     Indication: CROHN'S DISEASE
     Dosage: BASELINE
     Route: 058
     Dates: start: 20080809, end: 20080809
  4. SILVA SULFADENE CREAM [Concomitant]
     Indication: ANAL SKIN TAGS
     Route: 061
     Dates: start: 20090410
  5. LOTMAX OPTHALMIC GTTS [Concomitant]
     Indication: CORNEAL DISORDER
     Dosage: 1 GTT
     Route: 047
     Dates: start: 20091206, end: 20101220
  6. HUMIRA [Suspect]
     Route: 058
  7. HUMIRA [Suspect]
     Route: 058
  8. ZYRTEC [Concomitant]
     Indication: SEASONAL ALLERGY
     Dates: start: 20090227

REACTIONS (1)
  - CORNEAL DISORDER [None]
